FAERS Safety Report 18592546 (Version 15)
Quarter: 2021Q1

REPORT INFORMATION
  Report Type: Report from Study
  Country: US (occurrence: US)
  Receive Date: 20201208
  Receipt Date: 20210331
  Transmission Date: 20210419
  Serious: Yes (Death, Life-Threatening, Hospitalization)
  Sender: FDA-Public Use
  Company Number: US-PFIZER INC-2020483243

PATIENT
  Age: 64 Year
  Sex: Male

DRUGS (28)
  1. IDE 196 [Suspect]
     Active Substance: DAROVASERTIB
     Dosage: 300 MG, 1X/DAY (C2D1)
     Route: 048
     Dates: start: 20201015
  2. FLEXERIL [Concomitant]
     Active Substance: CYCLOBENZAPRINE HYDROCHLORIDE
     Dosage: UNK
     Dates: start: 20200831
  3. POTASSIUM CHLORIDE. [Concomitant]
     Active Substance: POTASSIUM CHLORIDE
     Dosage: UNK
     Dates: start: 20210131, end: 20210131
  4. KENALOG [Concomitant]
     Active Substance: TRIAMCINOLONE ACETONIDE
     Dosage: UNK
     Dates: start: 20200213
  5. COMPAZINE [Concomitant]
     Active Substance: PROCHLORPERAZINE MALEATE
     Dosage: UNK
     Dates: start: 20200918
  6. FLOMAX [Concomitant]
     Active Substance: TAMSULOSIN HYDROCHLORIDE
     Dosage: UNK
     Dates: start: 20201204
  7. MEKTOVI [Suspect]
     Active Substance: BINIMETINIB
     Dosage: 15 MG, 1X/DAY (C3D1)
     Route: 048
     Dates: start: 20201112, end: 20201127
  8. ATARAX [Concomitant]
     Active Substance: HYDROXYZINE HYDROCHLORIDE
     Dosage: UNK
     Dates: start: 20191007
  9. MEKTOVI [Suspect]
     Active Substance: BINIMETINIB
     Indication: UVEAL MELANOMA
     Dosage: 15 MG, 1X/DAY (C1D1)
     Route: 048
     Dates: start: 20200918
  10. MEKTOVI [Suspect]
     Active Substance: BINIMETINIB
     Dosage: 15 MG, 1X/DAY (C2D1)
     Route: 048
     Dates: start: 20201015
  11. CELEBREX [Concomitant]
     Active Substance: CELECOXIB
     Dosage: UNK
     Dates: start: 20200629
  12. IMODIUM [Concomitant]
     Active Substance: LOPERAMIDE HYDROCHLORIDE
     Dosage: UNK
     Dates: start: 20200918
  13. ATIVAN [Concomitant]
     Active Substance: LORAZEPAM
     Dosage: UNK
     Dates: start: 20201212, end: 20201213
  14. IDE 196 [Suspect]
     Active Substance: DAROVASERTIB
     Indication: UVEAL MELANOMA
     Dosage: 300 MG, 1X/DAY (C1D1)
     Route: 048
     Dates: start: 20200918
  15. IDE 196 [Suspect]
     Active Substance: DAROVASERTIB
     Dosage: 300 MG, 1X/DAY (C1D15)
     Route: 048
     Dates: start: 20201002
  16. DESOWEN [Concomitant]
     Active Substance: DESONIDE
     Dosage: UNK
     Dates: start: 20191002
  17. VIBRAMYCIN [Concomitant]
     Active Substance: DOXYCYCLINE
     Dosage: UNK
     Dates: start: 20201015, end: 20201130
  18. ZETIA [Concomitant]
     Active Substance: EZETIMIBE
     Dosage: UNK
     Dates: start: 20201212
  19. IDE 196 [Suspect]
     Active Substance: DAROVASERTIB
     Dosage: 300 MG, 1X/DAY (C3D1)
     Route: 065
     Dates: start: 20201112, end: 20201127
  20. ZESTRIL [Concomitant]
     Active Substance: LISINOPRIL
     Dosage: UNK
     Dates: start: 20201002
  21. IDE 196 [Suspect]
     Active Substance: DAROVASERTIB
     Dosage: UNK
     Route: 065
  22. PRISTIQ EXTENDED?RELEASE [Concomitant]
     Active Substance: DESVENLAFAXINE SUCCINATE
     Dosage: UNK
     Dates: start: 20200804
  23. TEMOVATE [Concomitant]
     Active Substance: CLOBETASOL PROPIONATE
     Dosage: UNK
     Dates: start: 20200227
  24. ZOFRAN [Concomitant]
     Active Substance: ONDANSETRON HYDROCHLORIDE
     Dosage: UNK
     Dates: start: 20201112
  25. MEKTOVI [Suspect]
     Active Substance: BINIMETINIB
     Dosage: 15 MG, 1X/DAY (C1D15)
     Route: 048
     Dates: start: 20201002
  26. TOPROL XL [Concomitant]
     Active Substance: METOPROLOL SUCCINATE
     Dosage: UNK
     Dates: start: 20200731
  27. LASIX [Concomitant]
     Active Substance: FUROSEMIDE
     Dosage: UNK
     Dates: start: 20201112
  28. ALDACTONE [Concomitant]
     Active Substance: SPIRONOLACTONE
     Dosage: UNK
     Dates: start: 20201112

REACTIONS (1)
  - Hepatitis cholestatic [Not Recovered/Not Resolved]

NARRATIVE: CASE EVENT DATE: 20201128
